FAERS Safety Report 5485486-6 (Version None)
Quarter: 2007Q4

REPORT INFORMATION
  Report Type: 
  Country: None (occurrence: None)
  Receive Date: 20071010
  Receipt Date: 20071010
  Transmission Date: 20080405
  Serious: Yes (Life-Threatening)
  Sender: FDA-Public Use
  Company Number: None

PATIENT
  Age: 45 Year
  Sex: Male

DRUGS (1)
  1. ISOFLURANE [Suspect]
     Indication: ANAESTHESIA
     Dosage: INHAL
     Route: 055
     Dates: start: 20070126, end: 20070126

REACTIONS (2)
  - HEPATIC FAILURE [None]
  - HEPATORENAL SYNDROME [None]
